FAERS Safety Report 9892205 (Version 2)
Quarter: 2014Q1

REPORT INFORMATION
  Report Type: Spontaneous
  Country: US (occurrence: US)
  Receive Date: 20140212
  Receipt Date: 20140212
  Transmission Date: 20141002
  Serious: Yes (Other)
  Sender: FDA-Public Use
  Company Number: US-BAYER-2014-017432

PATIENT
  Age: 100 Year
  Sex: Female
  Weight: 62 kg

DRUGS (2)
  1. PHILLIPS^ MILK OF MAGNESIA [Suspect]
     Indication: CONSTIPATION
     Dosage: FREQUENTLY
     Route: 048
  2. PANTOPRAZOLE [Concomitant]

REACTIONS (6)
  - Dyspepsia [Recovered/Resolved]
  - Throat irritation [Recovered/Resolved]
  - Vomiting [Recovered/Resolved]
  - Extra dose administered [None]
  - Intestinal obstruction [Not Recovered/Not Resolved]
  - Drug ineffective [None]
